FAERS Safety Report 16813140 (Version 1)
Quarter: 2019Q3

REPORT INFORMATION
  Report Type: Other
  Country: US (occurrence: US)
  Receive Date: 20190916
  Receipt Date: 20190916
  Transmission Date: 20191005
  Serious: Yes (Hospitalization)
  Sender: FDA-Public Use
  Company Number: US-LEADIANT BIOSCIENCES INC-2019STPI000159

PATIENT
  Sex: Male

DRUGS (8)
  1. LEVETIRACETAM. [Concomitant]
     Active Substance: LEVETIRACETAM
  2. DIVALPROEX [Concomitant]
     Active Substance: DIVALPROEX SODIUM
  3. MATULANE [Suspect]
     Active Substance: PROCARBAZINE HYDROCHLORIDE
     Indication: BRAIN NEOPLASM MALIGNANT
     Dosage: 100 MG, QD
     Route: 048
     Dates: start: 20180920
  4. ONDANSETRON [Concomitant]
     Active Substance: ONDANSETRON
  5. LEXAPRO [Concomitant]
     Active Substance: ESCITALOPRAM OXALATE
  6. DEXAMETHASONE. [Concomitant]
     Active Substance: DEXAMETHASONE
  7. LORAZEPAM. [Concomitant]
     Active Substance: LORAZEPAM
  8. MEGESTROL [Concomitant]
     Active Substance: MEGESTROL

REACTIONS (1)
  - Seizure [Unknown]
